FAERS Safety Report 13263802 (Version 2)
Quarter: 2017Q2

REPORT INFORMATION
  Report Type: Spontaneous
  Country: US (occurrence: US)
  Receive Date: 20170223
  Receipt Date: 20170414
  Transmission Date: 20170830
  Serious: Yes (Other)
  Sender: FDA-Public Use
  Company Number: US-PFIZER INC-2017075510

PATIENT
  Age: 33 Year
  Sex: Male
  Weight: 81.65 kg

DRUGS (1)
  1. CHANTIX [Suspect]
     Active Substance: VARENICLINE TARTRATE
     Indication: SMOKING CESSATION THERAPY
     Dosage: 1 MG, 2X/DAY
     Route: 048
     Dates: start: 20170121

REACTIONS (4)
  - Headache [Unknown]
  - Seizure [Unknown]
  - Tremor [Unknown]
  - Tension [Unknown]

NARRATIVE: CASE EVENT DATE: 2017
